FAERS Safety Report 7587403-1 (Version None)
Quarter: 2011Q3

REPORT INFORMATION
  Report Type: 
  Country: None (occurrence: None)
  Receive Date: 20110703
  Receipt Date: 20110628
  Transmission Date: 20111222
  Serious: Yes (Death, Hospitalization)
  Sender: FDA-Public Use
  Company Number: HR-ABBOTT-11P-216-0732870-00

PATIENT
  Age: 66 Year
  Sex: Male
  Weight: 64 kg

DRUGS (5)
  1. EUTHYROX [Concomitant]
     Indication: HYPOTHYROIDISM
     Dosage: 50 MCG DAILY
     Route: 048
  2. DILTIAZEM [Concomitant]
     Indication: ARRHYTHMIA
     Route: 048
  3. SEVELAMER [Concomitant]
     Indication: HYPERPHOSPHATAEMIA
     Route: 048
  4. ZEMPLAR [Suspect]
     Indication: HYPERPARATHYROIDISM SECONDARY
     Dosage: 5 MCG/ML AMP; 2X WEEKLY
     Route: 042
     Dates: start: 20110503, end: 20110520
  5. METHYLPREDNISOLONUM [Concomitant]
     Indication: LEUKOPENIA
     Route: 048

REACTIONS (3)
  - MYOCARDIAL INFARCTION [None]
  - MALAISE [None]
  - VENTRICULAR TACHYCARDIA [None]
